FAERS Safety Report 24356133 (Version 3)
Quarter: 2024Q4

REPORT INFORMATION
  Report Type: Report from Study
  Country: PH (occurrence: PH)
  Receive Date: 20240924
  Receipt Date: 20241023
  Transmission Date: 20250115
  Serious: Yes (Hospitalization)
  Sender: EMD SERONO INC
  Company Number: PH-Merck Healthcare KGaA-2024050357

PATIENT
  Age: 11 Year
  Sex: Male

DRUGS (1)
  1. SAIZEN [Suspect]
     Active Substance: SOMATROPIN
     Indication: Product used for unknown indication
     Route: 058
     Dates: start: 20230905, end: 202403

REACTIONS (3)
  - Brain neoplasm [Recovered/Resolved]
  - Neoplasm recurrence [Recovered/Resolved]
  - Rash [Recovered/Resolved]
